FAERS Safety Report 7532507-2 (Version None)
Quarter: 2011Q2

REPORT INFORMATION
  Report Type: 
  Country: None (occurrence: None)
  Receive Date: 20110608
  Receipt Date: 20110526
  Transmission Date: 20111010
  Serious: Yes (Other)
  Sender: FDA-Public Use
  Company Number: PHHY2011DE46710

PATIENT

DRUGS (1)
  1. VOLTAREN [Suspect]
     Dates: start: 20030101, end: 20030101

REACTIONS (1)
  - CROHN'S DISEASE [None]
